FAERS Safety Report 5574362-6 (Version None)
Quarter: 2007Q4

REPORT INFORMATION
  Report Type: 
  Country: None (occurrence: None)
  Receive Date: 20071227
  Receipt Date: 20071217
  Transmission Date: 20080405
  Serious: Yes (Other)
  Sender: FDA-Public Use
  Company Number: US-JNJFOC-20060700166

PATIENT
  Sex: Male
  Weight: 79.38 kg

DRUGS (8)
  1. TMC114 [Suspect]
     Route: 048
  2. TMC114 [Suspect]
     Indication: HIV INFECTION
     Route: 048
  3. NORVIR [Suspect]
     Route: 048
  4. NORVIR [Suspect]
     Indication: HIV INFECTION
     Route: 048
  5. TRUVADA [Concomitant]
     Indication: HIV INFECTION
     Route: 048
  6. FUZEON [Concomitant]
     Indication: HIV INFECTION
     Route: 058
  7. AZITHROMYCIN [Concomitant]
     Route: 065
  8. ACYCLOVIR [Concomitant]
     Route: 065

REACTIONS (1)
  - HEPATIC ENZYME INCREASED [None]
